FAERS Safety Report 9009269 (Version 1)
Quarter: 2013Q1

REPORT INFORMATION
  Report Type: Spontaneous
  Country: BE (occurrence: BE)
  Receive Date: 20130111
  Receipt Date: 20130111
  Transmission Date: 20140127
  Serious: Yes (Life-Threatening)
  Sender: FDA-Public Use
  Company Number: BE-GLAXOSMITHKLINE-B0850387A

PATIENT
  Age: 1 Year
  Sex: Male
  Weight: 10.5 kg

DRUGS (2)
  1. VENTOLIN [Suspect]
     Indication: BRONCHIOLITIS
     Route: 055
     Dates: start: 20121122, end: 20121122
  2. ATROVENT [Concomitant]
     Indication: BRONCHIOLITIS
     Dosage: .75MG PER DAY
     Dates: start: 20121117, end: 20121125

REACTIONS (3)
  - Generalised erythema [Recovered/Resolved]
  - Skin plaque [Recovered/Resolved]
  - Rash macular [Recovered/Resolved]
